FAERS Safety Report 12214800 (Version 2)
Quarter: 2016Q2

REPORT INFORMATION
  Report Type: Spontaneous
  Country: JP (occurrence: JP)
  Receive Date: 20160328
  Receipt Date: 20160425
  Transmission Date: 20160815
  Serious: Yes (Hospitalization)
  Sender: FDA-Public Use
  Company Number: JP-009507513-1603JPN012387

PATIENT

DRUGS (1)
  1. TEMODAL [Suspect]
     Active Substance: TEMOZOLOMIDE
     Dosage: 75 MG/SQUARE METER EVERY TIME, AND 5 DAYS TAKING AND 23 DAYS CESSATION
     Route: 048

REACTIONS (2)
  - Drug prescribing error [Unknown]
  - Disease progression [Unknown]
